FAERS Safety Report 21501132 (Version 2)
Quarter: 2022Q4

REPORT INFORMATION
  Report Type: Report from Study
  Country: US (occurrence: US)
  Receive Date: 20221025
  Receipt Date: 20221114
  Transmission Date: 20230113
  Serious: Yes (Hospitalization)
  Sender: FDA-Public Use
  Company Number: US-BAUSCH-BL-2022-024068

PATIENT
  Age: 68 Year
  Sex: Male

DRUGS (1)
  1. XIFAXAN [Suspect]
     Active Substance: RIFAXIMIN
     Indication: Hepatic cirrhosis
     Route: 048
     Dates: start: 202206

REACTIONS (2)
  - Fall [Recovered/Resolved]
  - Dehydration [Unknown]

NARRATIVE: CASE EVENT DATE: 20220101
